FAERS Safety Report 4753302-3 (Version None)
Quarter: 2005Q3

REPORT INFORMATION
  Report Type: 
  Country: None (occurrence: None)
  Receive Date: 20050826
  Receipt Date: 20050812
  Transmission Date: 20060218
  Serious: Yes (Hospitalization, Disabling)
  Sender: FDA-Public Use
  Company Number: DEWYE901812AUG05

PATIENT
  Age: 67 Year
  Sex: Female

DRUGS (3)
  1. ENBREL [Suspect]
     Indication: DRUG USE FOR UNKNOWN INDICATION
     Dates: start: 20031201, end: 20040701
  2. LANTAREL [Concomitant]
     Dosage: 25MG
  3. SULFASALAZINE [Concomitant]
     Dosage: 500MG

REACTIONS (2)
  - ARTHRITIS BACTERIAL [None]
  - MYCOBACTERIUM AVIUM COMPLEX INFECTION [None]
